FAERS Safety Report 23729704 (Version 2)
Quarter: 2024Q2

REPORT INFORMATION
  Report Type: Report from Study
  Country: US (occurrence: US)
  Receive Date: 20240411
  Receipt Date: 20240515
  Transmission Date: 20240715
  Serious: Yes (Other)
  Sender: FDA-Public Use
  Company Number: US-ABBVIE-5596860

PATIENT
  Age: 79 Year
  Sex: Male

DRUGS (2)
  1. IMBRUVICA [Suspect]
     Active Substance: IBRUTINIB
     Indication: Chronic lymphocytic leukaemia
     Route: 048
     Dates: start: 20200801
  2. IMBRUVICA [Suspect]
     Active Substance: IBRUTINIB
     Indication: Chronic lymphocytic leukaemia
     Route: 048

REACTIONS (9)
  - Deafness unilateral [Recovering/Resolving]
  - COVID-19 [Recovered/Resolved]
  - Malignant melanoma [Recovering/Resolving]
  - Ankle fracture [Recovered/Resolved]
  - Ear infection [Unknown]
  - Middle ear effusion [Recovering/Resolving]
  - Joint swelling [Not Recovered/Not Resolved]
  - COVID-19 [Recovering/Resolving]
  - Ear haemorrhage [Unknown]

NARRATIVE: CASE EVENT DATE: 20231118
